FAERS Safety Report 10017940 (Version 1)
Quarter: 2014Q1

REPORT INFORMATION
  Report Type: Spontaneous
  Country: US (occurrence: US)
  Receive Date: 20140318
  Receipt Date: 20140318
  Transmission Date: 20141002
  Serious: Yes (Other)
  Sender: FDA-Public Use
  Company Number: US-BRISTOL-MYERS SQUIBB COMPANY-18872267

PATIENT
  Sex: Male

DRUGS (1)
  1. ERBITUX [Suspect]
     Dosage: JANUARY OR FEBRUARY (2013)?ONLY RECEIVED ABOUT 10 MINUTES
     Dates: start: 2013, end: 2013

REACTIONS (1)
  - Anaphylactic shock [Unknown]
